FAERS Safety Report 12875604 (Version 1)
Quarter: 2016Q4

REPORT INFORMATION
  Report Type: Spontaneous
  Country: US (occurrence: US)
  Receive Date: 20161024
  Receipt Date: 20161024
  Transmission Date: 20170207
  Serious: Yes (Hospitalization)
  Sender: FDA-Public Use
  Company Number: US-ACCORD-045041

PATIENT
  Age: 38 Year
  Sex: Male

DRUGS (1)
  1. CLOZAPINE. [Suspect]
     Active Substance: CLOZAPINE
     Indication: PRODUCT USED FOR UNKNOWN INDICATION
     Dosage: STABLE ON CLOZAPINE FOR MORE THAN 10 YEARS

REACTIONS (3)
  - Hyperlipidaemia [Unknown]
  - Psychiatric decompensation [Not Recovered/Not Resolved]
  - Weight increased [Unknown]
